FAERS Safety Report 24208885 (Version 1)
Quarter: 2024Q3

REPORT INFORMATION
  Report Type: Spontaneous
  Country: US (occurrence: None)
  Receive Date: 20240813
  Receipt Date: 20240813
  Transmission Date: 20241016
  Serious: No
  Sender: Public
  Company Number: None

PATIENT
  Age: 39 Year
  Sex: Male
  Weight: 84.6 kg

DRUGS (5)
  1. OZEMPIC [Suspect]
     Active Substance: SEMAGLUTIDE
     Indication: Glycosylated haemoglobin increased
     Dosage: OTHER FREQUENCY : 1 PER WEEK;?
     Route: 030
     Dates: start: 20230801
  2. Lisinopril / HCTZ [Concomitant]
  3. OMEPRAZOLE [Concomitant]
     Active Substance: OMEPRAZOLE
  4. OCREVUS [Concomitant]
     Active Substance: OCRELIZUMAB
  5. Men^s Multi-Vitamin [Concomitant]

REACTIONS (2)
  - Skin burning sensation [None]
  - Burning sensation [None]

NARRATIVE: CASE EVENT DATE: 20240401
